FAERS Safety Report 12766157 (Version 1)
Quarter: 2016Q3

REPORT INFORMATION
  Report Type: Spontaneous
  Country: US (occurrence: US)
  Receive Date: 20160920
  Receipt Date: 20160920
  Transmission Date: 20161109
  Serious: Yes (Hospitalization)
  Sender: FDA-Public Use
  Company Number: None

PATIENT
  Age: 51 Year
  Sex: Male

DRUGS (9)
  1. MORPHINE SULFATE ER [Concomitant]
     Active Substance: MORPHINE SULFATE
  2. DEXAMETHASONE. [Concomitant]
     Active Substance: DEXAMETHASONE
  3. GENERLAC [Concomitant]
     Active Substance: LACTULOSE
  4. DIVALPROEX DR [Concomitant]
     Active Substance: DIVALPROEX SODIUM
  5. WARFARIN [Concomitant]
     Active Substance: WARFARIN
  6. NORCO [Concomitant]
     Active Substance: ACETAMINOPHEN\HYDROCODONE BITARTRATE
  7. LEVOCARNITINE. [Suspect]
     Active Substance: LEVOCARNITINE
     Indication: DEEP VEIN THROMBOSIS
     Route: 048
     Dates: start: 20160706, end: 20160917
  8. PHENYTOIN. [Concomitant]
     Active Substance: PHENYTOIN
  9. ZONISAMIDE. [Concomitant]
     Active Substance: ZONISAMIDE

REACTIONS (4)
  - Hyperphagia [None]
  - Fatigue [None]
  - Nausea [None]
  - Product substitution issue [None]

NARRATIVE: CASE EVENT DATE: 20160912
